FAERS Safety Report 9932818 (Version 1)
Quarter: 2014Q1

REPORT INFORMATION
  Report Type: Report from Study
  Country: US (occurrence: US)
  Receive Date: 20140228
  Receipt Date: 20140228
  Transmission Date: 20141002
  Serious: No
  Sender: FDA-Public Use
  Company Number: US-ABBVIE-13P-163-1081698-00

PATIENT
  Sex: Male
  Weight: 97.61 kg

DRUGS (16)
  1. ANDROGEL [Suspect]
     Indication: BLOOD TESTOSTERONE DECREASED
     Dates: end: 2012
  2. ANDROGEL [Suspect]
     Indication: BLOOD TESTOSTERONE DECREASED
     Dates: start: 2012
  3. OXYCONTIN [Concomitant]
     Indication: PRODUCT USED FOR UNKNOWN INDICATION
  4. GABAPENTIN [Concomitant]
     Indication: ANXIETY
  5. CLONIDINE [Concomitant]
     Indication: DRUG DEPENDENCE
  6. BACLOFEN [Concomitant]
     Indication: MUSCLE RELAXANT THERAPY
  7. OXYCODONE [Concomitant]
     Indication: PRODUCT USED FOR UNKNOWN INDICATION
  8. CLONAZEPAM [Concomitant]
     Indication: ANXIETY
  9. LEXAPRO [Concomitant]
     Indication: ANXIETY
  10. PRILOSEC [Concomitant]
     Indication: GASTROOESOPHAGEAL REFLUX DISEASE
  11. COMPAZINE [Concomitant]
     Indication: NAUSEA
  12. TRAZODONE [Concomitant]
     Indication: INSOMNIA
  13. FLONASE [Concomitant]
     Indication: HYPERSENSITIVITY
  14. NABUMETONE [Concomitant]
     Indication: ARTHRITIS
  15. VITAMINE E [Concomitant]
     Indication: PRODUCT USED FOR UNKNOWN INDICATION
  16. VITAMIN D [Concomitant]
     Indication: PRODUCT USED FOR UNKNOWN INDICATION

REACTIONS (4)
  - Seborrhoea [Not Recovered/Not Resolved]
  - Alopecia [Not Recovered/Not Resolved]
  - Hypertrichosis [Not Recovered/Not Resolved]
  - Wrong drug administered [Unknown]
